FAERS Safety Report 4963496-2 (Version None)
Quarter: 2006Q2

REPORT INFORMATION
  Report Type: 
  Country: None (occurrence: None)
  Receive Date: 20060404
  Receipt Date: 20060404
  Transmission Date: 20061013
  Serious: Yes (Death)
  Sender: FDA-Public Use
  Company Number: None

PATIENT
  Sex: Male
  Weight: 89.7 kg

DRUGS (1)
  1. GLEEVEC [Suspect]
     Indication: AMYOTROPHIC LATERAL SCLEROSIS
     Dosage: 300 MG QD ORAL
     Route: 048
     Dates: start: 20060213, end: 20060228

REACTIONS (3)
  - ENTEROCOCCAL INFECTION [None]
  - FEBRILE NEUTROPENIA [None]
  - THERAPY NON-RESPONDER [None]
